FAERS Safety Report 5481504-X (Version None)
Quarter: 2007Q4

REPORT INFORMATION
  Report Type: 
  Country: None (occurrence: None)
  Receive Date: 20071010
  Receipt Date: 20071002
  Transmission Date: 20080405
  Serious: Yes (Hospitalization)
  Sender: FDA-Public Use
  Company Number: ES-BAYER-200715802GDS

PATIENT
  Age: 76 Year
  Sex: Male

DRUGS (2)
  1. ADIRO 100 [Suspect]
     Indication: CORONARY ARTERY DISEASE
     Dosage: UNIT DOSE: 100 MG
     Route: 048
     Dates: start: 20070705, end: 20070812
  2. PLAVIX [Suspect]
     Indication: CORONARY ARTERY DISEASE
     Route: 048
     Dates: start: 20070705, end: 20070812

REACTIONS (1)
  - HAEMOPTYSIS [None]
